FAERS Safety Report 14831250 (Version 1)
Quarter: 2018Q2

REPORT INFORMATION
  Report Type: Spontaneous
  Country: PT (occurrence: PT)
  Receive Date: 20180501
  Receipt Date: 20180501
  Transmission Date: 20180711
  Serious: Yes (Life-Threatening)
  Sender: FDA-Public Use
  Company Number: PT-TEVA-2018-PT-886448

PATIENT
  Age: 77 Year
  Sex: Female

DRUGS (8)
  1. RAMIPRIL. [Concomitant]
     Active Substance: RAMIPRIL
  2. PARACETAMOL [Concomitant]
     Active Substance: ACETAMINOPHEN
  3. FUROSEMIDE. [Concomitant]
     Active Substance: FUROSEMIDE
  4. SITAGLIPTIN [Concomitant]
     Active Substance: SITAGLIPTIN
  5. ACARBOSE. [Concomitant]
     Active Substance: ACARBOSE
  6. WARFARIN [Concomitant]
     Active Substance: WARFARIN
  7. BISOPROLOL [Suspect]
     Active Substance: BISOPROLOL
     Indication: HYPERTENSION
     Dosage: 2.5 MILLIGRAM DAILY;
     Route: 048
     Dates: end: 20170720
  8. PITAVASTATIN. [Concomitant]
     Active Substance: PITAVASTATIN CALCIUM

REACTIONS (1)
  - Atrial fibrillation [Recovered/Resolved]

NARRATIVE: CASE EVENT DATE: 20170720
